FAERS Safety Report 7625842-0 (Version None)
Quarter: 2011Q3

REPORT INFORMATION
  Report Type: 
  Country: None (occurrence: None)
  Receive Date: 20110713
  Receipt Date: 20110629
  Transmission Date: 20111222
  Serious: Yes (Hospitalization)
  Sender: FDA-Public Use
  Company Number: TPA2011A03752

PATIENT
  Age: 46 Year
  Sex: Male

DRUGS (6)
  1. ADENURIC (FEBUXOSTAT) [Suspect]
     Indication: GOUT
     Dosage: 80 MG (80 MG, 1 IN 1 D) ORAL
     Route: 048
     Dates: start: 20110330, end: 20110531
  2. APROVEL (IRBESARTAN) [Concomitant]
  3. ATORVASTATIN CALCIUM [Concomitant]
  4. XALATAN [Concomitant]
  5. NEORAL [Concomitant]
  6. AZATHIOPRINE [Suspect]
     Indication: IMMUNOSUPPRESSANT DRUG THERAPY
     Dosage: 100 MG (50 MG, 2 IN 1 D) ORAL
     Route: 048
     Dates: end: 20110601

REACTIONS (5)
  - ANAEMIA [None]
  - NEUTROPENIA [None]
  - DRUG INTERACTION [None]
  - HAEMOLYTIC ANAEMIA [None]
  - MYELODYSPLASTIC SYNDROME [None]
